FAERS Safety Report 20561048 (Version 4)
Quarter: 2022Q1

REPORT INFORMATION
  Report Type: Spontaneous
  Country: US (occurrence: US)
  Receive Date: 20220307
  Receipt Date: 20220330
  Transmission Date: 20220424
  Serious: Yes (Hospitalization, Other)
  Sender: FDA-Public Use
  Company Number: US-PFIZER INC-202200359420

PATIENT
  Age: 71 Year
  Sex: Female

DRUGS (1)
  1. XELJANZ XR [Suspect]
     Active Substance: TOFACITINIB CITRATE
     Indication: Rheumatoid arthritis
     Dosage: 11 MG, 1X/DAY
     Route: 048
     Dates: start: 202201, end: 202202

REACTIONS (5)
  - Pneumothorax [Unknown]
  - Pneumonia bacterial [Unknown]
  - Staphylococcal infection [Unknown]
  - COVID-19 [Unknown]
  - Lung disorder [Unknown]

NARRATIVE: CASE EVENT DATE: 20220101
